FAERS Safety Report 12361618 (Version 3)
Quarter: 2019Q4

REPORT INFORMATION
  Report Type: Report from Study
  Country: US (occurrence: US)
  Receive Date: 20160512
  Receipt Date: 20191015
  Transmission Date: 20200122
  Serious: No
  Sender: FDA-Public Use
  Company Number: US-SA-2016SA057485

PATIENT
  Age: 72 Year
  Sex: Female

DRUGS (3)
  1. CHLORTHALIDONE. [Suspect]
     Active Substance: CHLORTHALIDONE
     Dosage: UNK
     Dates: start: 201909, end: 2019
  2. ROSUVASTATIN CALCIUM. [Suspect]
     Active Substance: ROSUVASTATIN CALCIUM
  3. ALIROCUMAB [Suspect]
     Active Substance: ALIROCUMAB
     Indication: BLOOD CHOLESTEROL INCREASED
     Dosage: 75 MG/ML, QOW
     Route: 058
     Dates: start: 20160315

REACTIONS (5)
  - Myalgia [Recovered/Resolved]
  - Dizziness [Unknown]
  - Memory impairment [Unknown]
  - Product dose omission [Unknown]
  - Groin pain [Recovered/Resolved]

NARRATIVE: CASE EVENT DATE: 20160316
